FAERS Safety Report 18184622 (Version 2)
Quarter: 2020Q3

REPORT INFORMATION
  Report Type: Spontaneous
  Country: US (occurrence: US)
  Receive Date: 20200824
  Receipt Date: 20200828
  Transmission Date: 20201103
  Serious: No
  Sender: FDA-Public Use
  Company Number: US-BIOGEN-2020BI00913976

PATIENT
  Age: 24 Year
  Sex: Female

DRUGS (1)
  1. TYSABRI [Suspect]
     Active Substance: NATALIZUMAB
     Indication: MULTIPLE SCLEROSIS
     Route: 065
     Dates: start: 20130523

REACTIONS (6)
  - Fatigue [Recovered/Resolved]
  - Product dose omission issue [Unknown]
  - Somnolence [Recovered/Resolved]
  - Multiple sclerosis relapse [Recovered/Resolved]
  - Inappropriate schedule of product administration [Recovered/Resolved]
  - Gait inability [Unknown]

NARRATIVE: CASE EVENT DATE: 202008
